FAERS Safety Report 26057375 (Version 1)
Quarter: 2025Q4

REPORT INFORMATION
  Report Type: Spontaneous
  Country: EU (occurrence: EU)
  Receive Date: 20251118
  Receipt Date: 20251118
  Transmission Date: 20260118
  Serious: Yes (Other)
  Sender: BAUSCH AND LOMB
  Company Number: EU-JNJFOC-20251143462

PATIENT
  Sex: Male

DRUGS (6)
  1. DEXAMETHASONE [Suspect]
     Active Substance: DEXAMETHASONE
     Indication: Plasma cell myeloma
     Route: 065
     Dates: start: 20231117, end: 202504
  2. DEXAMETHASONE [Suspect]
     Active Substance: DEXAMETHASONE
     Dosage: DOSE RE-INTRODUCED
     Route: 065
  3. DARZALEX [Suspect]
     Active Substance: DARATUMUMAB
     Indication: Plasma cell myeloma
     Route: 065
     Dates: start: 20231117, end: 202504
  4. DARZALEX [Suspect]
     Active Substance: DARATUMUMAB
     Dosage: DOSE RE-INTRODUCED
     Route: 065
  5. VELCADE [Suspect]
     Active Substance: BORTEZOMIB
     Indication: Plasma cell myeloma
     Route: 065
     Dates: start: 20231117, end: 202504
  6. VELCADE [Suspect]
     Active Substance: BORTEZOMIB
     Dosage: DOSE RE-INTRODUCED
     Route: 065

REACTIONS (1)
  - Plasma cell myeloma [Unknown]
